FAERS Safety Report 6227470-0 (Version None)
Quarter: 2009Q2

REPORT INFORMATION
  Report Type: 
  Country: None (occurrence: None)
  Receive Date: 20090612
  Receipt Date: 20090602
  Transmission Date: 20091009
  Serious: Yes (Other)
  Sender: FDA-Public Use
  Company Number: PHHY2009JP13250

PATIENT
  Sex: Male
  Weight: 60 kg

DRUGS (5)
  1. DIOVAN [Suspect]
     Indication: HYPERTENSION
     Dosage: 80 MG, QD
     Route: 048
     Dates: start: 20081006
  2. DIOVAN [Suspect]
     Dosage: 80 MG, BID
     Route: 048
     Dates: start: 20090119
  3. DIOVAN [Suspect]
     Dosage: 80 MG, QD
     Route: 048
     Dates: start: 20090316
  4. ADALAT [Concomitant]
     Dosage: 20 MG/DAY
     Route: 048
  5. NIFELAT [Concomitant]
     Dosage: 20 MG/DAY
     Route: 050
     Dates: start: 20000116

REACTIONS (5)
  - BLOOD PRESSURE INCREASED [None]
  - DRUG EFFECT DECREASED [None]
  - HAEMOLYSIS [None]
  - IRON DEFICIENCY ANAEMIA [None]
  - SERUM FERRITIN INCREASED [None]
